FAERS Safety Report 16220092 (Version 2)
Quarter: 2019Q2

REPORT INFORMATION
  Report Type: Spontaneous
  Country: US (occurrence: US)
  Receive Date: 20190420
  Receipt Date: 20190519
  Transmission Date: 20190711
  Serious: No
  Sender: FDA-Public Use
  Company Number: US-JNJFOC-20190337863

PATIENT
  Sex: Female
  Weight: 86.18 kg

DRUGS (3)
  1. GLIPIZIDE. [Concomitant]
     Active Substance: GLIPIZIDE
     Indication: DIABETES MELLITUS
     Route: 048
     Dates: start: 2006
  2. GLUCOPHAGE [Concomitant]
     Active Substance: METFORMIN HYDROCHLORIDE
     Indication: DIABETES MELLITUS
     Route: 048
     Dates: start: 2006
  3. OXYBUTYNIN HYDROCHLORIDE [Suspect]
     Active Substance: OXYBUTYNIN CHLORIDE
     Indication: INCONTINENCE
     Route: 048

REACTIONS (6)
  - Urinary incontinence [Not Recovered/Not Resolved]
  - Drug ineffective [Unknown]
  - Alopecia [Unknown]
  - Visual impairment [Unknown]
  - Headache [Unknown]
  - Radiation injury [Unknown]

NARRATIVE: CASE EVENT DATE: 2002
